FAERS Safety Report 9269609 (Version 1)
Quarter: 2013Q2

REPORT INFORMATION
  Report Type: Spontaneous
  Country: BR (occurrence: BR)
  Receive Date: 20130503
  Receipt Date: 20130503
  Transmission Date: 20140414
  Serious: Yes (Hospitalization, Other)
  Sender: FDA-Public Use
  Company Number: BR-PFIZER INC-2013134199

PATIENT
  Age: 65 Year
  Sex: Female
  Weight: 54 kg

DRUGS (4)
  1. LIPITOR [Suspect]
     Indication: BLOOD CHOLESTEROL INCREASED
     Dosage: 20 MG (ONE TABLET), 1X/DAY
     Route: 048
     Dates: start: 20080611
  2. ATORVASTATIN CALCIUM [Suspect]
     Indication: BLOOD CHOLESTEROL INCREASED
     Dosage: 20MG, ONE TABLET OR CAPSULE ONCE DAILY
     Route: 048
  3. DIOVAN [Concomitant]
     Indication: BLOOD PRESSURE INCREASED
     Dosage: 160 MG (ONE CAPUSLE OR TABLET), 2X/DAY
     Dates: start: 2008
  4. LIBIAN [Concomitant]
     Indication: HORMONE REPLACEMENT THERAPY
     Dosage: 1.25 MG (ONE CAPSULE OR TABLET), 1X/DAY

REACTIONS (2)
  - Spondylolisthesis [Unknown]
  - Neuritis [Unknown]
